FAERS Safety Report 6375426-X (Version None)
Quarter: 2009Q3

REPORT INFORMATION
  Report Type: 
  Country: None (occurrence: None)
  Receive Date: 20090917
  Receipt Date: 20090917
  Transmission Date: 20100115
  Serious: No
  Sender: FDA-Public Use
  Company Number: None

PATIENT
  Age: 42 Year
  Sex: Male

DRUGS (1)
  1. METOPROLOL TARTRATE [Suspect]

REACTIONS (2)
  - HYPERHIDROSIS [None]
  - HYPOTENSION [None]
